FAERS Safety Report 6143974-3 (Version None)
Quarter: 2009Q2

REPORT INFORMATION
  Report Type: 
  Country: None (occurrence: None)
  Receive Date: 20090406
  Receipt Date: 20090327
  Transmission Date: 20091009
  Serious: Yes (Other)
  Sender: FDA-Public Use
  Company Number: CH-JNJFOC-20090306620

PATIENT
  Age: 44 Year
  Sex: Female

DRUGS (6)
  1. RISPERDAL [Suspect]
     Indication: OBSESSIVE-COMPULSIVE DISORDER
     Route: 048
  2. RIVOTRIL [Suspect]
     Indication: OBSESSIVE-COMPULSIVE DISORDER
     Route: 048
  3. XANAX [Suspect]
     Indication: OBSESSIVE-COMPULSIVE DISORDER
     Route: 048
  4. DORMICUM [Suspect]
     Indication: OBSESSIVE-COMPULSIVE DISORDER
     Route: 048
  5. FLUCTINE [Suspect]
     Indication: OBSESSIVE-COMPULSIVE DISORDER
     Route: 048
  6. ZOLPIDEM [Suspect]
     Indication: OBSESSIVE-COMPULSIVE DISORDER
     Route: 048

REACTIONS (2)
  - DRUG EXPOSURE DURING PREGNANCY [None]
  - OFF LABEL USE [None]
